FAERS Safety Report 7265723-8 (Version None)
Quarter: 2011Q1

REPORT INFORMATION
  Report Type: 
  Country: None (occurrence: None)
  Receive Date: 20110131
  Receipt Date: 20110118
  Transmission Date: 20110831
  Serious: Yes (Other)
  Sender: FDA-Public Use
  Company Number: US-ELI_LILLY_AND_COMPANY-US201012003492

PATIENT
  Age: 45 Year
  Sex: Male
  Weight: 113.38 kg

DRUGS (1)
  1. CIALIS [Suspect]
     Indication: ERECTILE DYSFUNCTION
     Dosage: 10 MG, AS NEEDED
     Route: 048

REACTIONS (3)
  - DELIRIUM [None]
  - AMNESIA [None]
  - DISORIENTATION [None]
